FAERS Safety Report 8157437-7 (Version None)
Quarter: 2012Q1

REPORT INFORMATION
  Report Type: 
  Country: None (occurrence: None)
  Receive Date: 20120222
  Receipt Date: 20120210
  Transmission Date: 20120608
  Serious: No
  Sender: FDA-Public Use
  Company Number: US-B.I. PHARMACEUTICALS,INC./RIDGEFIELD-2012-BP-02668BP

PATIENT
  Sex: Female

DRUGS (3)
  1. COMBIVENT [Suspect]
     Route: 055
     Dates: start: 20100601
  2. WELLBUTRIN SR [Concomitant]
     Route: 048
  3. CRESTOR [Concomitant]
     Dates: start: 20120203

REACTIONS (1)
  - EYE PAIN [None]
